FAERS Safety Report 14638260 (Version 1)
Quarter: 2018Q1

REPORT INFORMATION
  Report Type: Spontaneous
  Country: US (occurrence: US)
  Receive Date: 20180314
  Receipt Date: 20180314
  Transmission Date: 20180509
  Serious: Yes (Other)
  Sender: FDA-Public Use
  Company Number: US-NOVOPROD-589594

PATIENT
  Age: 71 Year
  Sex: Male
  Weight: 86.17 kg

DRUGS (2)
  1. VICTOZA [Suspect]
     Active Substance: LIRAGLUTIDE
     Indication: TYPE 2 DIABETES MELLITUS
     Dosage: 0.6 MG, QD
     Route: 058
     Dates: start: 20180228, end: 20180303
  2. VICTOZA [Suspect]
     Active Substance: LIRAGLUTIDE
     Dosage: 1.2 MG, QD
     Route: 058
     Dates: start: 20180303, end: 20180304

REACTIONS (8)
  - Nausea [Recovering/Resolving]
  - Weight decreased [Recovering/Resolving]
  - Dyspepsia [Recovering/Resolving]
  - Diarrhoea [Recovering/Resolving]
  - Wrong technique in product usage process [Unknown]
  - Loss of consciousness [Recovering/Resolving]
  - Vomiting [Recovering/Resolving]
  - Drug titration error [Recovered/Resolved]

NARRATIVE: CASE EVENT DATE: 20180228
